FAERS Safety Report 5248476-4 (Version None)
Quarter: 2007Q1

REPORT INFORMATION
  Report Type: 
  Country: None (occurrence: None)
  Receive Date: 20070227
  Receipt Date: 20070216
  Transmission Date: 20070707
  Serious: Yes (Other)
  Sender: FDA-Public Use
  Company Number: US-PFIZER INC-2006063994

PATIENT
  Age: 77 Year
  Sex: Female

DRUGS (4)
  1. DETROL LA [Suspect]
     Indication: INCONTINENCE
  2. ALL OTHER THERAPEUTIC PRODUCTS [Concomitant]
  3. ALL OTHER THERAPEUTIC PRODUCTS [Concomitant]
  4. PRILOSEC [Concomitant]

REACTIONS (5)
  - BODY HEIGHT DECREASED [None]
  - DRY MOUTH [None]
  - HYPERTENSION [None]
  - MIDDLE INSOMNIA [None]
  - URINARY INCONTINENCE [None]
